FAERS Safety Report 20126911 (Version 2)
Quarter: 2021Q4

REPORT INFORMATION
  Report Type: Spontaneous
  Country: US (occurrence: US)
  Receive Date: 20211129
  Receipt Date: 20211217
  Transmission Date: 20220303
  Serious: Yes (Hospitalization, Other)
  Sender: FDA-Public Use
  Company Number: US-ALLERGAN-2137633US

PATIENT

DRUGS (2)
  1. DALVANCE [Suspect]
     Active Substance: DALBAVANCIN
     Indication: Staphylococcal infection
     Dosage: 1500 MG, SINGLE
     Route: 042
     Dates: start: 20211112, end: 20211112
  2. DALVANCE [Suspect]
     Active Substance: DALBAVANCIN
     Indication: Endocarditis
     Dosage: 1500 MG, SINGLE, EVERY WK X2

REACTIONS (2)
  - Sepsis [Unknown]
  - Off label use [Unknown]
